FAERS Safety Report 9549516 (Version 3)
Quarter: 2013Q4

REPORT INFORMATION
  Report Type: Spontaneous
  Country: DE (occurrence: DE)
  Receive Date: 20130924
  Receipt Date: 20131121
  Transmission Date: 20140711
  Serious: Yes (Hospitalization, Other)
  Sender: FDA-Public Use
  Company Number: DE-JNJFOC-20130911165

PATIENT
  Age: 39 Year
  Sex: Female
  Weight: 140 kg

DRUGS (7)
  1. RISPERDAL QUICKLET [Suspect]
     Indication: PRODUCT USED FOR UNKNOWN INDICATION
     Route: 048
  2. METFORMIN [Concomitant]
     Route: 065
  3. CIATYL [Concomitant]
     Dosage: 10-30 MG/D
     Route: 065
  4. TOREM [Concomitant]
     Route: 065
  5. NOVOTHYRAL [Concomitant]
     Route: 065
  6. DIAZEPAM [Concomitant]
     Route: 065
  7. ZOPICLONE [Concomitant]
     Route: 065

REACTIONS (1)
  - Mastitis [Recovered/Resolved]
